FAERS Safety Report 17664693 (Version 1)
Quarter: 2020Q2

REPORT INFORMATION
  Report Type: Spontaneous
  Country: US (occurrence: US)
  Receive Date: 20200414
  Receipt Date: 20200414
  Transmission Date: 20200713
  Serious: Yes (Life-Threatening, Hospitalization)
  Sender: FDA-Public Use
  Company Number: US-PERRIGO-20US004742

PATIENT
  Age: 28 Year
  Sex: Female

DRUGS (2)
  1. LEVOFLOXACIN. [Concomitant]
     Active Substance: LEVOFLOXACIN
     Indication: PYELONEPHRITIS
     Dosage: UNKNOWN, UNKNOWN
     Route: 065
  2. LOPERAMIDE HYDROCHLORIDE. [Suspect]
     Active Substance: LOPERAMIDE HYDROCHLORIDE
     Indication: DRUG ABUSE
     Dosage: 400 MG, PRE-ADMISSION AND ON DAY 3
     Route: 048

REACTIONS (2)
  - Torsade de pointes [Recovered/Resolved]
  - Drug abuse [Recovered/Resolved]
